FAERS Safety Report 8310566-7 (Version None)
Quarter: 2012Q2

REPORT INFORMATION
  Report Type: 
  Country: None (occurrence: None)
  Receive Date: 20120425
  Receipt Date: 20120417
  Transmission Date: 20120825
  Serious: Yes (Other)
  Sender: FDA-Public Use
  Company Number: US-BAYER-2011-037660

PATIENT
  Age: 35 Year
  Sex: Female
  Weight: 86.168 kg

DRUGS (5)
  1. VICODIN [Concomitant]
     Indication: PAIN
     Dosage: UNK UNK, HS
  2. MOTRIN [Concomitant]
     Indication: PLANTAR FASCIITIS
     Dosage: 800 MG, TID
     Dates: start: 20030501
  3. YASMIN [Suspect]
     Dosage: UNK
     Dates: start: 20020517, end: 20030630
  4. NSAID'S [Concomitant]
     Dosage: UNK UNK, PRN
  5. ASCORBIC ACID [Concomitant]

REACTIONS (4)
  - DEPRESSION [None]
  - POST THROMBOTIC SYNDROME [None]
  - ANXIETY [None]
  - DEEP VEIN THROMBOSIS [None]
